FAERS Safety Report 10989083 (Version 4)
Quarter: 2023Q2

REPORT INFORMATION
  Report Type: Report from Study
  Country: US (occurrence: US)
  Receive Date: 20150406
  Receipt Date: 20230516
  Transmission Date: 20230722
  Serious: Yes (Hospitalization, Disabling)
  Sender: FDA-Public Use
  Company Number: US-UCBSA-2015009895

PATIENT
  Sex: Female

DRUGS (5)
  1. LEVETIRACETAM [Suspect]
     Active Substance: LEVETIRACETAM
     Indication: Seizure
     Dosage: 1500 MG, 2X/DAY (BID), EXPIRY DATE:30-SEP-2016; 31-DEC-2016
     Route: 048
     Dates: start: 200912
  2. DEPAKOTE [Concomitant]
     Active Substance: DIVALPROEX SODIUM
     Indication: Seizure
     Dosage: 1000 MG, 2X/DAY (BID)
     Route: 048
  3. STOOL SOFTENER (DOCUSATE) [Concomitant]
     Active Substance: DOCUSATE
     Indication: Product used for unknown indication
     Dosage: UNK, ONCE DAILY (QD)
     Route: 048
  4. VITAMINS NOS [Concomitant]
     Active Substance: VITAMINS
     Indication: Product used for unknown indication
     Dosage: UNK, ONCE DAILY (QD)
     Route: 048
  5. LEVETIRACETAM [Concomitant]
     Active Substance: LEVETIRACETAM
     Indication: Product used for unknown indication
     Dosage: UNK
     Dates: end: 200912

REACTIONS (4)
  - Paralysis [Not Recovered/Not Resolved]
  - Incontinence [Not Recovered/Not Resolved]
  - Bedridden [Not Recovered/Not Resolved]
  - Inability to afford medication [Unknown]
